FAERS Safety Report 9683739 (Version 3)
Quarter: 2013Q4

REPORT INFORMATION
  Report Type: Spontaneous
  Country: BG (occurrence: BG)
  Receive Date: 20131112
  Receipt Date: 20131217
  Transmission Date: 20140711
  Serious: Yes (Other)
  Sender: FDA-Public Use
  Company Number: BG-BRISTOL-MYERS SQUIBB COMPANY-19795830

PATIENT
  Age: 37 Year
  Sex: Female

DRUGS (1)
  1. ELIQUIS [Suspect]
     Indication: PULMONARY EMBOLISM
     Dosage: 7NOV13-11NOV13
     Route: 048
     Dates: start: 20131107, end: 20131111

REACTIONS (1)
  - Cough [Recovered/Resolved]
